FAERS Safety Report 14220801 (Version 1)
Quarter: 2017Q4

REPORT INFORMATION
  Report Type: Spontaneous
  Country: AU (occurrence: AU)
  Receive Date: 20171124
  Receipt Date: 20171124
  Transmission Date: 20180321
  Serious: Yes (Life-Threatening, Hospitalization, Disabling, Other)
  Sender: FDA-Public Use
  Company Number: AU-ASTRAZENECA-2017SF19770

PATIENT
  Age: 11599 Day
  Sex: Male

DRUGS (1)
  1. SEROQUEL XR [Suspect]
     Active Substance: QUETIAPINE FUMARATE
     Dosage: 400.0DF UNKNOWN
     Route: 048
     Dates: start: 20131101, end: 20171121

REACTIONS (5)
  - Coagulopathy [Unknown]
  - Thrombosis [Unknown]
  - Lung disorder [Unknown]
  - Cardiac disorder [Unknown]
  - Renal impairment [Unknown]
